FAERS Safety Report 10537561 (Version 1)
Quarter: 2014Q4

REPORT INFORMATION
  Report Type: Spontaneous
  Country: US (occurrence: None)
  Receive Date: 20141022
  Receipt Date: 20141022
  Transmission Date: 20150529
  Serious: Yes (Hospitalization)
  Sender: FDA-Public Use
  Company Number: None

PATIENT
  Age: 71 Year
  Sex: Male

DRUGS (2)
  1. IMBRUVICA [Suspect]
     Active Substance: IBRUTINIB
     Indication: CHRONIC LYMPHOCYTIC LEUKAEMIA
     Dosage: TAKE 4 DAILY
     Route: 048
     Dates: start: 20140726
  2. IMBRUVICA [Suspect]
     Active Substance: IBRUTINIB
     Indication: LYMPHOMA
     Dosage: TAKE 4 DAILY
     Route: 048
     Dates: start: 20140726

REACTIONS (4)
  - Abscess [None]
  - Epistaxis [None]
  - Peripheral swelling [None]
  - Bacteraemia [None]

NARRATIVE: CASE EVENT DATE: 20141018
